FAERS Safety Report 18845208 (Version 1)
Quarter: 2021Q1

REPORT INFORMATION
  Report Type: Report from Study
  Country: US (occurrence: US)
  Receive Date: 20210203
  Receipt Date: 20210203
  Transmission Date: 20210419
  Serious: No
  Sender: FDA-Public Use
  Company Number: US-EXELIXIS-CABO-20029670

PATIENT
  Sex: Male

DRUGS (2)
  1. CABOMETYX [Suspect]
     Active Substance: CABOZANTINIB S-MALATE
     Indication: LUNG NEOPLASM MALIGNANT
     Dosage: 60 MG
     Dates: start: 20200318, end: 20200416
  2. CABOMETYX [Suspect]
     Active Substance: CABOZANTINIB S-MALATE
     Indication: CHEST WALL TUMOUR
     Dosage: 40 MG, QD
     Dates: start: 20200507

REACTIONS (4)
  - Dry skin [Recovering/Resolving]
  - Off label use [Unknown]
  - Oral pain [Recovering/Resolving]
  - Hypoaesthesia oral [Recovering/Resolving]
